FAERS Safety Report 9450867 (Version 2)
Quarter: 2013Q3

REPORT INFORMATION
  Report Type: Spontaneous
  Country: BR (occurrence: None)
  Receive Date: 20130807
  Receipt Date: 20130925
  Transmission Date: 20140515
  Serious: Yes (Hospitalization, Other)
  Sender: FDA-Public Use
  Company Number: DSU-2013-04166

PATIENT
  Age: 77 Year
  Sex: Female
  Weight: 68 kg

DRUGS (6)
  1. OLMETEC HCT (HYDROCHLOROTHIAZIDE, OLMESARTAN MEDOXOMIL) (TABLET) (HYDROCHLOROTHIAZIDE, OLMESARTAN MEDOXOMIL) [Suspect]
     Indication: HYPERTENSION
     Dosage: 40/25 MG (QAM) ,PER ORAL
     Route: 048
     Dates: start: 20121108
  2. NORVASC [Suspect]
     Indication: HYPERTENSION
     Dosage: 5 MG (5 MG, QHS)
     Dates: start: 20121108
  3. AAS (ACETYLSALICYLIC ACID (100 MILLIGRAM) (ACETYLSALICYLIC ACID) [Concomitant]
  4. LIPTOR (ATORVASTATIN (20 MILLIGRAM) (ATORVASTATIN) [Concomitant]
  5. OMEPRAZOLE (OMEPRAZOLE) (20 MILLIGRAM) (OMEPRAZOLE) [Concomitant]
  6. SUSTRATE (PROPATYLNITRATE) (PROPATYLNITRATE) [Concomitant]

REACTIONS (3)
  - Chest pain [None]
  - Fatigue [None]
  - Venous occlusion [None]
